FAERS Safety Report 5298514-8 (Version None)
Quarter: 2007Q2

REPORT INFORMATION
  Report Type: 
  Country: None (occurrence: None)
  Receive Date: 20070409
  Receipt Date: 20070327
  Transmission Date: 20071010
  Serious: Yes (Hospitalization)
  Sender: FDA-Public Use
  Company Number: 2006BI018551

PATIENT
  Age: 49 Year
  Sex: Female

DRUGS (2)
  1. NATALIZUMAB [Suspect]
     Indication: MULTIPLE SCLEROSIS
     Dosage: 300 MG;QM;IV
     Route: 042
     Dates: start: 20060918
  2. NATALIZUMAB [Suspect]
     Indication: MULTIPLE SCLEROSIS
     Dosage: 300 MG;QM;IV
     Route: 042

REACTIONS (10)
  - CLOSTRIDIAL INFECTION [None]
  - CONDITION AGGRAVATED [None]
  - DELIRIUM [None]
  - MENTAL DISORDER [None]
  - MULTIPLE SCLEROSIS [None]
  - NO THERAPEUTIC RESPONSE [None]
  - ORAL INTAKE REDUCED [None]
  - SEDATION [None]
  - SEPSIS [None]
  - URINARY TRACT INFECTION [None]
